FAERS Safety Report 8611853-5 (Version None)
Quarter: 2012Q3

REPORT INFORMATION
  Report Type: 
  Country: None (occurrence: None)
  Receive Date: 20120822
  Receipt Date: 20120820
  Transmission Date: 20120928
  Serious: Yes (Death, Hospitalization)
  Sender: FDA-Public Use
  Company Number: FR-ROCHE-1104732

PATIENT
  Age: 34 Year
  Sex: Male

DRUGS (5)
  1. LOXAPINE HCL [Suspect]
     Indication: AGGRESSION
     Route: 048
     Dates: start: 20120614, end: 20120625
  2. LEPTICUR [Suspect]
     Indication: PRODUCT USED FOR UNKNOWN INDICATION
     Route: 048
     Dates: start: 20120605, end: 20120625
  3. DEPAKENE [Suspect]
     Indication: PRODUCT USED FOR UNKNOWN INDICATION
     Route: 048
     Dates: end: 20120625
  4. QUETIAPINE FUMARATE [Suspect]
     Indication: PSYCHOTIC DISORDER
     Dosage: DRUG REPORTED AS XEROQUEL
     Route: 048
     Dates: start: 20120605, end: 20120625
  5. VALIUM [Suspect]
     Indication: PRODUCT USED FOR UNKNOWN INDICATION
     Route: 048
     Dates: end: 20120625

REACTIONS (3)
  - GASTROINTESTINAL NECROSIS [None]
  - INTESTINAL OBSTRUCTION [None]
  - INTESTINAL ISCHAEMIA [None]
